FAERS Safety Report 16480389 (Version 3)
Quarter: 2019Q4

REPORT INFORMATION
  Report Type: Report from Study
  Country: US (occurrence: US)
  Receive Date: 20190626
  Receipt Date: 20191120
  Transmission Date: 20200122
  Serious: Yes (Hospitalization)
  Sender: FDA-Public Use
  Company Number: US-ACTELION-A-NJ2018-169567

PATIENT
  Sex: Female
  Weight: 45.35 kg

DRUGS (4)
  1. TRACLEER [Interacting]
     Active Substance: BOSENTAN
     Dosage: 125 MG, BID
     Route: 048
  2. TRACLEER [Suspect]
     Active Substance: BOSENTAN
     Indication: PULMONARY ARTERIAL HYPERTENSION
     Dosage: 125 MG, BID
     Route: 048
  3. DILTIAZEM. [Concomitant]
     Active Substance: DILTIAZEM
  4. FLUCONAZOLE. [Interacting]
     Active Substance: FLUCONAZOLE
     Indication: INFECTION
     Route: 065

REACTIONS (14)
  - Cardiac infection [Unknown]
  - Limb injury [Unknown]
  - Disease complication [Unknown]
  - Fungal infection [Unknown]
  - Panic attack [Unknown]
  - Pulmonary arterial hypertension [Unknown]
  - Dyspnoea [Unknown]
  - Presyncope [Unknown]
  - Drug interaction [Unknown]
  - Peripheral swelling [Unknown]
  - Pneumonia [Unknown]
  - Chest pain [Unknown]
  - Bacterial infection [Unknown]
  - Menopause [Unknown]
